FAERS Safety Report 15098810 (Version 1)
Quarter: 2018Q3

REPORT INFORMATION
  Report Type: Spontaneous
  Country: CA (occurrence: CA)
  Receive Date: 20180702
  Receipt Date: 20180702
  Transmission Date: 20181010
  Serious: Yes (Other)
  Sender: FDA-Public Use
  Company Number: CA-JNJFOC-20180625711

PATIENT
  Sex: Female

DRUGS (1)
  1. EVICEL [Suspect]
     Active Substance: FIBRINOGEN HUMAN\THROMBIN HUMAN
     Indication: HAEMOSTASIS
     Route: 061

REACTIONS (4)
  - Premature delivery [Unknown]
  - Milk allergy [Unknown]
  - Foetal exposure during pregnancy [Recovered/Resolved]
  - Jaundice neonatal [Unknown]
